FAERS Safety Report 8923706 (Version 1)
Quarter: 2012Q4

REPORT INFORMATION
  Report Type: Spontaneous
  Country: GB (occurrence: None)
  Receive Date: 20121115
  Receipt Date: 20121115
  Transmission Date: 20130627
  Serious: Yes (Life-Threatening, Disabling)
  Sender: FDA-Public Use
  Company Number: FK201203304

PATIENT
  Age: 21 Year
  Sex: Female
  Weight: 60 kg

DRUGS (5)
  1. ONDANSETRON [Suspect]
     Route: 042
     Dates: start: 20120921, end: 20120921
  2. DIHYDROCODEINE [Concomitant]
  3. IBUPROFEN (IBUPROFEN) [Concomitant]
  4. PARACETAMOL (PARACETAMOL) [Concomitant]
  5. TEMAZEPAM (TEMAZEPAM) [Concomitant]

REACTIONS (5)
  - Apnoea [None]
  - Nuchal rigidity [None]
  - Posturing [None]
  - Monoplegia [None]
  - Oculogyric crisis [None]
